FAERS Safety Report 17082615 (Version 1)
Quarter: 2019Q4

REPORT INFORMATION
  Report Type: Spontaneous
  Country: FR (occurrence: FR)
  Receive Date: 20191127
  Receipt Date: 20191127
  Transmission Date: 20200122
  Serious: Yes (Hospitalization)
  Sender: FDA-Public Use
  Company Number: FR-MYLANLABS-2019M1116045

PATIENT
  Age: 47 Year
  Sex: Female
  Weight: 84 kg

DRUGS (6)
  1. LORAZEPAM. [Suspect]
     Active Substance: LORAZEPAM
     Indication: ANXIETY
     Dosage: 2.5 MILLIGRAM, QD
     Route: 048
     Dates: start: 20190322, end: 20190605
  2. DEPAKOTE [Suspect]
     Active Substance: DIVALPROEX SODIUM
     Indication: BIPOLAR DISORDER
     Dosage: 1500 MILLIGRAM, QD
     Route: 048
     Dates: start: 20190426
  3. GAVISCON                           /01279101/ [Concomitant]
     Active Substance: ALUMINUM HYDROXIDE \CALCIUM CARBONATE\SODIUM ALGINATE\SODIUM BICARBONATE
     Indication: GASTROOESOPHAGEAL REFLUX DISEASE
     Dosage: 1 DOSAGE FORM
     Route: 048
     Dates: start: 20190426
  4. DIAZEPAM. [Suspect]
     Active Substance: DIAZEPAM
     Indication: PROPHYLAXIS AGAINST ALCOHOLIC WITHDRAWAL SYNDROME
     Dosage: VARIABLE
     Route: 048
     Dates: start: 20190421
  5. ESOMEPRAZOLE. [Concomitant]
     Active Substance: ESOMEPRAZOLE MAGNESIUM
     Dosage: 40 MILLIGRAM, QD
     Route: 048
     Dates: start: 20180101
  6. TERALITHE [Suspect]
     Active Substance: LITHIUM CARBONATE
     Indication: BIPOLAR DISORDER
     Dosage: 1200 MILLIGRAM, QD
     Route: 048
     Dates: start: 20181104

REACTIONS (2)
  - Confusional state [Not Recovered/Not Resolved]
  - Antipsychotic drug level increased [Recovered/Resolved]

NARRATIVE: CASE EVENT DATE: 20190504
